FAERS Safety Report 9671234 (Version 1)
Quarter: 2013Q4

REPORT INFORMATION
  Report Type: Spontaneous
  Country: GB (occurrence: GB)
  Receive Date: 20131106
  Receipt Date: 20131106
  Transmission Date: 20140711
  Serious: Yes (Hospitalization)
  Sender: FDA-Public Use
  Company Number: GB-ROXANE LABORATORIES, INC.-2013-RO-01773RO

PATIENT
  Age: 36 Year
  Sex: Male

DRUGS (4)
  1. METHADONE [Suspect]
     Indication: DRUG DEPENDENCE
     Dosage: 90 MG
     Dates: start: 1997
  2. QUETIAPINE FUMARATE [Suspect]
     Indication: DEPRESSION
     Dosage: 50 MG
     Dates: start: 200905
  3. VENLAFAXINE [Suspect]
     Indication: DEPRESSION
     Dosage: 375 MG
     Dates: start: 200902
  4. LEVOTHYROXINE [Suspect]
     Indication: DEPRESSION
     Dosage: 50 MCG
     Dates: start: 200812

REACTIONS (1)
  - Neuroleptic malignant syndrome [Recovered/Resolved]
